FAERS Safety Report 13395239 (Version 1)
Quarter: 2017Q1

REPORT INFORMATION
  Report Type: Spontaneous
  Country: US (occurrence: US)
  Receive Date: 20170331
  Receipt Date: 20170331
  Transmission Date: 20170429
  Serious: Yes (Life-Threatening)
  Sender: FDA-Public Use
  Company Number: None

PATIENT
  Age: 87 Day
  Sex: Male
  Weight: 76.5 kg

DRUGS (3)
  1. VENTOLIN/ALBUTERAL [Concomitant]
  2. SYMBICORT [Suspect]
     Active Substance: BUDESONIDE\FORMOTEROL FUMARATE DIHYDRATE
     Indication: ASTHMA
     Route: 048
  3. PREDIZONE [Concomitant]

REACTIONS (2)
  - Suicidal ideation [None]
  - Mental impairment [None]
